FAERS Safety Report 9934512 (Version 1)
Quarter: 2014Q1

REPORT INFORMATION
  Report Type: Spontaneous
  Country: US (occurrence: US)
  Receive Date: 20140228
  Receipt Date: 20140228
  Transmission Date: 20141002
  Serious: No
  Sender: FDA-Public Use
  Company Number: US-ASTRAZENECA-2013SE82760

PATIENT
  Age: 76 Year
  Sex: Female
  Weight: 72.6 kg

DRUGS (5)
  1. METOPROLOL SUCCINATE [Suspect]
     Indication: BLOOD PRESSURE
     Route: 048
  2. LISINOPRIL [Suspect]
     Indication: BLOOD PRESSURE
     Dosage: UNKNOWN DOSE, DAILY
     Route: 048
  3. ZETIA [Concomitant]
  4. LIPITOR [Concomitant]
  5. PROCARDIA [Concomitant]

REACTIONS (1)
  - Hypertension [Unknown]
